FAERS Safety Report 8611635-4 (Version None)
Quarter: 2012Q3

REPORT INFORMATION
  Report Type: 
  Country: None (occurrence: None)
  Receive Date: 20120822
  Receipt Date: 20120808
  Transmission Date: 20120928
  Serious: Yes (Death, Other)
  Sender: FDA-Public Use
  Company Number: US-ROCHE-1064644

PATIENT
  Sex: Male
  Weight: 71.278 kg

DRUGS (13)
  1. LORAZEPAM [Suspect]
     Indication: PRODUCT USED FOR UNKNOWN INDICATION
     Route: 048
  2. VICODIN [Concomitant]
     Indication: PAIN
  3. ROXANOL [Concomitant]
  4. DULCOLAX [Concomitant]
  5. MIRALAX [Concomitant]
  6. DEXAMETHASONE [Concomitant]
     Indication: PAIN
     Route: 048
  7. ACETAMINOPHEN [Concomitant]
  8. ATROPINE [Concomitant]
  9. MORPHINE SULFATE [Suspect]
     Indication: PAIN
     Route: 048
  10. COMPAZINE [Concomitant]
  11. LEVSIN [Concomitant]
  12. ZELBORAF [Suspect]
     Indication: PRODUCT USED FOR UNKNOWN INDICATION
     Route: 048
     Dates: start: 20120405, end: 20120420
  13. OXYGEN [Concomitant]

REACTIONS (4)
  - HEPATIC FAILURE [None]
  - CEREBROVASCULAR ACCIDENT [None]
  - METASTASES TO CENTRAL NERVOUS SYSTEM [None]
  - JAUNDICE [None]
